FAERS Safety Report 5234308-7 (Version None)
Quarter: 2007Q1

REPORT INFORMATION
  Report Type: 
  Country: None (occurrence: None)
  Receive Date: 20070207
  Receipt Date: 20070126
  Transmission Date: 20070707
  Serious: Yes (Hospitalization)
  Sender: FDA-Public Use
  Company Number: 2007BI001489

PATIENT
  Age: 26 Year
  Sex: Female

DRUGS (1)
  1. NATALIZUMAB [Suspect]
     Indication: MULTIPLE SCLEROSIS
     Dosage: 300 MG; QM; IV
     Route: 042
     Dates: start: 20061024, end: 20070116

REACTIONS (4)
  - CONFUSIONAL STATE [None]
  - CONVULSION [None]
  - DRUG ERUPTION [None]
  - HYPERSENSITIVITY [None]
